FAERS Safety Report 9870021 (Version 6)
Quarter: 2014Q4

REPORT INFORMATION
  Report Type: Spontaneous
  Country: US (occurrence: US)
  Receive Date: 20140205
  Receipt Date: 20141006
  Transmission Date: 20150529
  Serious: No
  Sender: FDA-Public Use
  Company Number: US-PFIZER INC-2014033270

PATIENT
  Age: 57 Year
  Sex: Female
  Weight: 86.62 kg

DRUGS (21)
  1. AMLODIPINE BESYLATE. [Concomitant]
     Active Substance: AMLODIPINE BESYLATE
     Indication: HYPERTENSION
     Dosage: UNK
     Dates: start: 20121109
  2. AMLODIPINE BESYLATE. [Concomitant]
     Active Substance: AMLODIPINE BESYLATE
     Dosage: 10 MG, DAILY
     Route: 048
     Dates: start: 20130812
  3. AMITRIPTYLINE HYDROCHLORIDE. [Concomitant]
     Active Substance: AMITRIPTYLINE HYDROCHLORIDE
     Indication: ANXIETY
     Dosage: 25 MG, 1X/DAY AT BEDTIME
     Route: 048
     Dates: start: 20131008
  4. NEURONTIN [Suspect]
     Active Substance: GABAPENTIN
     Indication: FIBROMYALGIA
     Dosage: 300 MG, AT BEDTIME
     Route: 048
     Dates: start: 20121119
  5. ASPIRIN. [Concomitant]
     Active Substance: ASPIRIN
     Dosage: 81 MG, DAILY
     Dates: start: 20090122
  6. FLEXERIL [Concomitant]
     Active Substance: CYCLOBENZAPRINE HYDROCHLORIDE
     Indication: MYALGIA
     Dosage: 10MG, 1/2 - 1 TWICE TIMES DAILY, AS NEEDED
     Route: 048
     Dates: start: 20121119
  7. AMITRIPTYLINE HYDROCHLORIDE. [Concomitant]
     Active Substance: AMITRIPTYLINE HYDROCHLORIDE
     Indication: INSOMNIA
     Dosage: UNK
     Dates: start: 20130716
  8. DEPAKOTE [Concomitant]
     Active Substance: DIVALPROEX SODIUM
     Indication: INSOMNIA
  9. LYRICA [Concomitant]
     Active Substance: PREGABALIN
     Indication: PAIN
  10. TOPIRAMATE. [Concomitant]
     Active Substance: TOPIRAMATE
  11. SKELAXIN [Concomitant]
     Active Substance: METAXALONE
  12. NEURONTIN [Suspect]
     Active Substance: GABAPENTIN
     Indication: PAIN
     Dosage: 300 MG, TWICE DAILY
     Route: 048
  13. LACTULOSE. [Concomitant]
     Active Substance: LACTULOSE
     Indication: CONSTIPATION
     Dosage: 20 G, DAILY
     Route: 048
     Dates: start: 20130716
  14. NORVASC [Concomitant]
     Active Substance: AMLODIPINE BESYLATE
     Dosage: UNK
  15. FLEXERIL [Concomitant]
     Active Substance: CYCLOBENZAPRINE HYDROCHLORIDE
     Indication: MUSCLE SPASMS
  16. NEURONTIN [Suspect]
     Active Substance: GABAPENTIN
     Dosage: 300 MG, THREE TIMES A DAY
     Route: 048
     Dates: end: 20121221
  17. NEURONTIN [Suspect]
     Active Substance: GABAPENTIN
     Dosage: UNK
     Route: 048
     Dates: start: 20130716, end: 201308
  18. FENOFIBRATE. [Concomitant]
     Active Substance: FENOFIBRATE
     Indication: DYSLIPIDAEMIA
     Dosage: 160 MG, DAILY
     Route: 048
     Dates: start: 20131205
  19. DEPAKOTE [Concomitant]
     Active Substance: DIVALPROEX SODIUM
     Indication: MOOD ALTERED
     Dosage: 250 MG, 3X/DAY (1 (ONE) ORAL IN AM AND 2 TAB IN PM)
     Route: 048
     Dates: start: 20130812
  20. DEPAKOTE [Concomitant]
     Active Substance: DIVALPROEX SODIUM
     Indication: HEADACHE
  21. LYRICA [Concomitant]
     Active Substance: PREGABALIN
     Indication: FIBROMYALGIA
     Dosage: 75 MG + 150 MG
     Route: 048
     Dates: start: 20130920

REACTIONS (22)
  - Depression [Unknown]
  - Weight increased [Unknown]
  - Vision blurred [Recovered/Resolved]
  - Feeling abnormal [Recovered/Resolved]
  - Pain [Unknown]
  - Back pain [Unknown]
  - Joint stiffness [Unknown]
  - Anger [Unknown]
  - Mood swings [Unknown]
  - Fibromyalgia [Unknown]
  - Muscle spasms [Unknown]
  - Dyspnoea [Unknown]
  - Product use issue [Unknown]
  - Fatigue [Unknown]
  - Spinal pain [Unknown]
  - Exercise tolerance decreased [Unknown]
  - Anxiety [Unknown]
  - Arthralgia [Unknown]
  - Pain in extremity [Unknown]
  - Myalgia [Unknown]
  - Fall [Unknown]
  - Somnolence [Recovered/Resolved]
